FAERS Safety Report 13332173 (Version 1)
Quarter: 2017Q1

REPORT INFORMATION
  Report Type: Spontaneous
  Country: US (occurrence: US)
  Receive Date: 20170314
  Receipt Date: 20170314
  Transmission Date: 20170428
  Serious: No
  Sender: FDA-Public Use
  Company Number: US-JNJFOC-20170225138

PATIENT
  Age: 62 Year
  Sex: Female
  Weight: 102.2 kg

DRUGS (3)
  1. ZOFRAN [Concomitant]
     Active Substance: ONDANSETRON HYDROCHLORIDE
     Route: 065
  2. VICODIN [Concomitant]
     Active Substance: ACETAMINOPHEN\HYDROCODONE BITARTRATE
     Route: 065
  3. YONDELIS [Suspect]
     Active Substance: TRABECTEDIN
     Indication: NEOPLASM MALIGNANT
     Dosage: 1.2 MG PER METERED SQUARED
     Route: 042

REACTIONS (1)
  - Rash [Unknown]

NARRATIVE: CASE EVENT DATE: 2017
